FAERS Safety Report 7651614 (Version 3)
Quarter: 2013Q4

REPORT INFORMATION
  Report Type: Spontaneous
  Country: US (occurrence: US)
  Receive Date: 20101101
  Receipt Date: 20131227
  Transmission Date: 20140711
  Serious: Yes (Other)
  Sender: FDA-Public Use
  Company Number: US-BAYER-201038344NA

PATIENT
  Age: 23 Year
  Sex: Female
  Weight: 83.9 kg

DRUGS (3)
  1. YASMIN [Suspect]
     Indication: ORAL CONTRACEPTION
     Dosage: UNK UNK, QD
     Route: 048
     Dates: start: 2001, end: 2003
  2. YASMIN [Suspect]
     Indication: MENSTRUATION IRREGULAR
     Dosage: UNK
     Dates: start: 2002, end: 2003
  3. YASMIN [Suspect]
     Indication: WEIGHT ABNORMAL

REACTIONS (6)
  - Cholecystitis acute [Recovered/Resolved]
  - Gallbladder disorder [None]
  - Pain [None]
  - Gastrointestinal disorder [None]
  - Abdominal pain upper [None]
  - Vomiting [None]
